FAERS Safety Report 7710522-3 (Version None)
Quarter: 2011Q3

REPORT INFORMATION
  Report Type: 
  Country: None (occurrence: None)
  Receive Date: 20110825
  Receipt Date: 20110822
  Transmission Date: 20111222
  Serious: Yes (Other)
  Sender: FDA-Public Use
  Company Number: US-BAYER-2011-038678

PATIENT
  Age: 45 Year
  Sex: Male

DRUGS (1)
  1. BETASERON [Suspect]
     Indication: RELAPSING-REMITTING MULTIPLE SCLEROSIS
     Dosage: 8 MIU, QOD
     Route: 058
     Dates: start: 20110310

REACTIONS (5)
  - INJECTION SITE ERYTHEMA [None]
  - INJECTION SITE SCAB [None]
  - SKIN NECROSIS [None]
  - INJECTION SITE CELLULITIS [None]
  - INJECTION SITE PAIN [None]
